FAERS Safety Report 15509150 (Version 1)
Quarter: 2018Q4

REPORT INFORMATION
  Report Type: Spontaneous
  Country: US (occurrence: US)
  Receive Date: 20181016
  Receipt Date: 20181016
  Transmission Date: 20190205
  Serious: Yes (Hospitalization)
  Sender: FDA-Public Use
  Company Number: None

PATIENT
  Age: 59 Year
  Sex: Female

DRUGS (21)
  1. HYPERSAL [Concomitant]
  2. RISEDRONATE [Concomitant]
     Active Substance: RISEDRONATE SODIUM
  3. MONTELUKAST [Concomitant]
     Active Substance: MONTELUKAST SODIUM
  4. TRULICITY [Concomitant]
     Active Substance: DULAGLUTIDE
  5. FAMOTIDINE. [Concomitant]
     Active Substance: FAMOTIDINE
  6. TOBRAMYCIN. [Suspect]
     Active Substance: TOBRAMYCIN
     Indication: BRONCHIECTASIS
     Route: 055
     Dates: start: 20180908
  7. JENTADUETO [Concomitant]
     Active Substance: LINAGLIPTIN\METFORMIN HYDROCHLORIDE
  8. PREDNISONE. [Concomitant]
     Active Substance: PREDNISONE
  9. LEVOCETIRIZINE [Concomitant]
     Active Substance: LEVOCETIRIZINE
  10. TRUPLUS [Concomitant]
  11. MYCELEX [Concomitant]
     Active Substance: CLOTRIMAZOLE
  12. DULOXETINE. [Concomitant]
     Active Substance: DULOXETINE
  13. LINZESS [Concomitant]
     Active Substance: LINACLOTIDE
  14. ZOSYN [Concomitant]
     Active Substance: PIPERACILLIN SODIUM\TAZOBACTAM SODIUM
  15. ALBUTEROL. [Concomitant]
     Active Substance: ALBUTEROL
  16. ACYCLOVIR. [Concomitant]
     Active Substance: ACYCLOVIR
  17. ATORVASTATIN [Concomitant]
     Active Substance: ATORVASTATIN
  18. VENTOLIN [Concomitant]
     Active Substance: ALBUTEROL SULFATE
  19. BREO ELLIPTA [Concomitant]
     Active Substance: FLUTICASONE FUROATE\VILANTEROL TRIFENATATE
  20. JARDIANCE [Concomitant]
     Active Substance: EMPAGLIFLOZIN
  21. LOSARTAN. [Concomitant]
     Active Substance: LOSARTAN

REACTIONS (1)
  - Dyspnoea [None]

NARRATIVE: CASE EVENT DATE: 20181010
